FAERS Safety Report 4690037-X (Version None)
Quarter: 2005Q2

REPORT INFORMATION
  Report Type: 
  Country: None (occurrence: None)
  Receive Date: 20050614
  Receipt Date: 20050530
  Transmission Date: 20051028
  Serious: Yes (Death)
  Sender: FDA-Public Use
  Company Number: 2005080765

PATIENT
  Age: 70 Year
  Sex: Female

DRUGS (3)
  1. NORVASC [Suspect]
     Indication: ILL-DEFINED DISORDER
     Dosage: (5 MG, SINGLE), ORAL
     Route: 048
  2. ANTIPSYCHOTICS (ANTIPSYCHOTICS) [Concomitant]
  3. ANT-DIABETICS (ANTI-DIABETICS) [Concomitant]

REACTIONS (1)
  - MULTIPLE DRUG OVERDOSE [None]
